FAERS Safety Report 8103388-3 (Version None)
Quarter: 2012Q1

REPORT INFORMATION
  Report Type: 
  Country: None (occurrence: None)
  Receive Date: 20120201
  Receipt Date: 20120130
  Transmission Date: 20120608
  Serious: Yes (Other)
  Sender: FDA-Public Use
  Company Number: US-PFIZER INC-2012025806

PATIENT
  Sex: Female
  Weight: 79.365 kg

DRUGS (5)
  1. ALPRAZOLAM [Concomitant]
     Indication: SLEEP DISORDER
  2. CHANTIX [Suspect]
     Indication: SMOKING CESSATION THERAPY
     Dosage: 0.5 MG, DAILY
     Route: 048
  3. CHANTIX [Suspect]
     Dosage: 0.5 MG, DAILY
     Route: 048
     Dates: start: 20120101
  4. ALPRAZOLAM [Concomitant]
     Indication: ANXIETY
     Dosage: 1 MG, 3X/DAY
  5. NORCO [Concomitant]
     Indication: MUSCULOSKELETAL DISCOMFORT
     Dosage: 10/325MG, 6 TABLETS AT AN UNKNOWN FREQUENCY

REACTIONS (4)
  - FEELING ABNORMAL [None]
  - ANXIETY [None]
  - ABNORMAL DREAMS [None]
  - NAUSEA [None]
